FAERS Safety Report 5252415-X (Version None)
Quarter: 2007Q1

REPORT INFORMATION
  Report Type: 
  Country: None (occurrence: None)
  Receive Date: 20070301
  Receipt Date: 20061222
  Transmission Date: 20070707
  Serious: No
  Sender: FDA-Public Use
  Company Number: US-BRISTOL-MYERS SQUIBB COMPANY-13623228

PATIENT
  Age: 59 Year
  Sex: Male
  Weight: 98 kg

DRUGS (4)
  1. PACLITAXEL [Suspect]
     Indication: TRANSITIONAL CELL CANCER OF THE RENAL PELVIS AND URETER
     Route: 042
     Dates: start: 20061201, end: 20061201
  2. GEMCITABINE [Concomitant]
     Dates: start: 20061201, end: 20061201
  3. FLOMAX [Concomitant]
     Dates: end: 20061201
  4. DEXAMETHASONE [Concomitant]
     Indication: PREMEDICATION
     Route: 048

REACTIONS (2)
  - ALOPECIA [None]
  - ARTHRALGIA [None]
